FAERS Safety Report 13511970 (Version 1)
Quarter: 2017Q2

REPORT INFORMATION
  Report Type: Spontaneous
  Country: US (occurrence: US)
  Receive Date: 20170503
  Receipt Date: 20170503
  Transmission Date: 20170830
  Serious: Yes (Hospitalization)
  Sender: FDA-Public Use
  Company Number: None

PATIENT
  Age: 29 Year
  Sex: Male

DRUGS (3)
  1. EXJADE [Suspect]
     Active Substance: DEFERASIROX
     Indication: SICKLE CELL ANAEMIA
     Route: 048
     Dates: start: 2015
  2. HYDROMORPHON [Concomitant]
     Active Substance: HYDROMORPHONE
  3. FENTANYL. [Concomitant]
     Active Substance: FENTANYL

REACTIONS (2)
  - Sickle cell anaemia with crisis [None]
  - Chest pain [None]

NARRATIVE: CASE EVENT DATE: 201704
